FAERS Safety Report 5738628-9 (Version None)
Quarter: 2008Q2

REPORT INFORMATION
  Report Type: 
  Country: None (occurrence: None)
  Receive Date: 20080513
  Receipt Date: 20080511
  Transmission Date: 20081010
  Serious: Yes (Hospitalization)
  Sender: FDA-Public Use
  Company Number: 20084667

PATIENT
  Sex: Female

DRUGS (1)
  1. LIORESAL [Suspect]
     Indication: MUSCLE SPASTICITY
     Dosage: -200 MCG, DAILY, INTRATHECAL
     Route: 037

REACTIONS (8)
  - CATHETER RELATED COMPLICATION [None]
  - DELIRIUM [None]
  - HALLUCINATION, AUDITORY [None]
  - MENTAL STATUS CHANGES [None]
  - MYDRIASIS [None]
  - OVERDOSE [None]
  - PSYCHOTIC DISORDER [None]
  - UNDERDOSE [None]
